FAERS Safety Report 8509229 (Version 3)
Quarter: 2013Q2

REPORT INFORMATION
  Report Type: Report from Study
  Country: CA (occurrence: CA)
  Receive Date: 20120412
  Receipt Date: 20130516
  Transmission Date: 20140414
  Serious: Yes (Hospitalization, Other)
  Sender: FDA-Public Use
  Company Number: CA-ABBOTT-12P-028-0922954-00

PATIENT
  Sex: Female

DRUGS (3)
  1. HUMIRA [Suspect]
     Indication: CROHN^S DISEASE
     Route: 058
  2. HUMIRA [Suspect]
     Route: 058
     Dates: start: 20120327, end: 20120410
  3. HUMIRA [Suspect]
     Dosage: LOADING DOSE
     Route: 058
     Dates: start: 20130510

REACTIONS (3)
  - Malaise [Not Recovered/Not Resolved]
  - Intestinal resection [Unknown]
  - Post procedural infection [Not Recovered/Not Resolved]
